FAERS Safety Report 9294049 (Version 2)
Quarter: 2013Q4

REPORT INFORMATION
  Report Type: Spontaneous
  Country: US (occurrence: None)
  Receive Date: 20121218
  Receipt Date: 20131224
  Transmission Date: 20140711
  Serious: Yes (Hospitalization)
  Sender: FDA-Public Use
  Company Number: PHEH2012US016829

PATIENT
  Age: 78 Year
  Sex: Female

DRUGS (1)
  1. FEMARA [Suspect]
     Indication: BREAST CANCER
     Dates: end: 20110927

REACTIONS (6)
  - Thrombosis [None]
  - Pulmonary embolism [None]
  - Restlessness [None]
  - Emotional distress [None]
  - Deep vein thrombosis [None]
  - Intracardiac thrombus [None]
